FAERS Safety Report 4513460-2 (Version None)
Quarter: 2004Q4

REPORT INFORMATION
  Report Type: 
  Country: None (occurrence: None)
  Receive Date: 20041130
  Receipt Date: 20041026
  Transmission Date: 20050328
  Serious: Yes (Other)
  Sender: FDA-Public Use
  Company Number: US-BRISTOL-MYERS SQUIBB COMPANY-12747382

PATIENT
  Sex: Male

DRUGS (4)
  1. ERBITUX [Suspect]
     Indication: COLON CANCER METASTATIC
     Dosage: 1ST INFUSION 15-JUN(400 MG/M2), REC'D TOTAL OF 7 CYCLES.
     Route: 042
     Dates: start: 20041001, end: 20041001
  2. BENADRYL [Concomitant]
     Indication: PREMEDICATION
  3. DECADRON [Concomitant]
     Indication: PREMEDICATION
  4. ANZEMET [Concomitant]
     Indication: PREMEDICATION

REACTIONS (2)
  - BLEPHARITIS [None]
  - DERMATITIS ACNEIFORM [None]
